FAERS Safety Report 7604900-0 (Version None)
Quarter: 2011Q3

REPORT INFORMATION
  Report Type: 
  Country: None (occurrence: None)
  Receive Date: 20110712
  Receipt Date: 20110630
  Transmission Date: 20111222
  Serious: Yes (Other)
  Sender: FDA-Public Use
  Company Number: JP-BRISTOL-MYERS SQUIBB COMPANY-15893654

PATIENT
  Age: 64 Year
  Sex: Female

DRUGS (2)
  1. METFORMIN HCL [Suspect]
     Route: 048
  2. VILDAGLIPTIN [Concomitant]
     Route: 048

REACTIONS (3)
  - DIARRHOEA [None]
  - CONTRAINDICATION TO MEDICAL TREATMENT [None]
  - DEPRESSED LEVEL OF CONSCIOUSNESS [None]
